FAERS Safety Report 13001169 (Version 1)
Quarter: 2016Q4

REPORT INFORMATION
  Report Type: Spontaneous
  Country: US (occurrence: US)
  Receive Date: 20161206
  Receipt Date: 20161206
  Transmission Date: 20170207
  Serious: No
  Sender: FDA-Public Use
  Company Number: US-FRESENIUS KABI-FK201609429

PATIENT

DRUGS (1)
  1. FLUPHENAZINE (MANUFACTURER UNKNOWN) [Suspect]
     Active Substance: FLUPHENAZINE
     Indication: PRODUCT USED FOR UNKNOWN INDICATION
     Route: 065

REACTIONS (1)
  - Injection site cyst [Unknown]
